FAERS Safety Report 4312250-3 (Version None)
Quarter: 2004Q1

REPORT INFORMATION
  Report Type: 
  Country: None (occurrence: None)
  Receive Date: 20040302
  Receipt Date: 20031103
  Transmission Date: 20041129
  Serious: No
  Sender: FDA-Public Use
  Company Number: 200327942BWH

PATIENT
  Age: 76 Year
  Sex: Male
  Weight: 72.5755 kg

DRUGS (8)
  1. LEVITRA [Suspect]
     Indication: ERECTILE DYSFUNCTION
     Dosage: 10MG BIW ORAL, 20 MG BIW ORAL
     Route: 048
     Dates: start: 20031001
  2. LEVITRA [Suspect]
     Indication: ERECTILE DYSFUNCTION
     Dosage: 10MG BIW ORAL, 20 MG BIW ORAL
     Route: 048
     Dates: start: 20031001
  3. TOPROL-XL [Concomitant]
  4. REQUIP [Concomitant]
  5. LIPITOR [Concomitant]
  6. ELAVIL [Concomitant]
  7. SINEMET [Concomitant]
  8. PROTONIX [Concomitant]

REACTIONS (1)
  - ERECTILE DYSFUNCTION [None]
